FAERS Safety Report 7951720-3 (Version None)
Quarter: 2011Q4

REPORT INFORMATION
  Report Type: 
  Country: None (occurrence: None)
  Receive Date: 20111130
  Receipt Date: 20111130
  Transmission Date: 20120403
  Serious: Yes (Hospitalization)
  Sender: FDA-Public Use
  Company Number: None

PATIENT
  Age: 55 Year
  Sex: Male
  Weight: 65.5901 kg

DRUGS (1)
  1. LINIFANIB - IND # 111592 [Suspect]
     Indication: COLON CANCER METASTATIC
     Dosage: ORAL,12.5MG DAILY
     Route: 048
     Dates: start: 20110728

REACTIONS (4)
  - ABDOMINAL PAIN [None]
  - ABDOMINAL DISTENSION [None]
  - ASCITES [None]
  - HAEMATEMESIS [None]
